FAERS Safety Report 8791348 (Version 1)
Quarter: 2012Q4

REPORT INFORMATION
  Report Type: Spontaneous
  Country: US (occurrence: None)
  Receive Date: 20120914
  Receipt Date: 20120914
  Transmission Date: 20130627
  Serious: No
  Sender: FDA-Public Use
  Company Number: None

PATIENT
  Age: 54 Year
  Sex: Female
  Weight: 68.95 kg

DRUGS (2)
  1. BENICAR HCT [Suspect]
  2. LOSARTAN/HCTZ 100/25 [Suspect]

REACTIONS (3)
  - Erythema [None]
  - Fluid retention [None]
  - Ill-defined disorder [None]
